FAERS Safety Report 6265486-9 (Version None)
Quarter: 2009Q3

REPORT INFORMATION
  Report Type: 
  Country: None (occurrence: None)
  Receive Date: 20090713
  Receipt Date: 20090703
  Transmission Date: 20100115
  Serious: Yes (Other)
  Sender: FDA-Public Use
  Company Number: PHHY2009JP27582

PATIENT
  Sex: Female

DRUGS (2)
  1. VOLTAREN [Suspect]
     Indication: ABDOMINAL DISCOMFORT
     Route: 054
  2. VOLTAREN [Suspect]
     Indication: BACK PAIN
     Dosage: UNK
     Route: 054

REACTIONS (1)
  - STILLBIRTH [None]
